FAERS Safety Report 7454000-8 (Version None)
Quarter: 2011Q2

REPORT INFORMATION
  Report Type: 
  Country: None (occurrence: None)
  Receive Date: 20110502
  Receipt Date: 20110301
  Transmission Date: 20111010
  Serious: No
  Sender: FDA-Public Use
  Company Number: US-ASTRAZENECA-2011SE11170

PATIENT
  Age: 62 Year
  Sex: Female
  Weight: 68 kg

DRUGS (2)
  1. RANITIDINE [Concomitant]
  2. NEXIUM [Suspect]
     Indication: REFLUX LARYNGITIS
     Dosage: TOTAL DAILY DOSAGE:40 MG , TWO TIMES A DAY
     Route: 048
     Dates: start: 20030101

REACTIONS (4)
  - UPPER-AIRWAY COUGH SYNDROME [None]
  - COUGH [None]
  - THROAT IRRITATION [None]
  - DRUG INEFFECTIVE [None]
